FAERS Safety Report 13407320 (Version 1)
Quarter: 2017Q2

REPORT INFORMATION
  Report Type: Report from Study
  Country: US (occurrence: US)
  Receive Date: 20170405
  Receipt Date: 20170405
  Transmission Date: 20170830
  Serious: No
  Sender: FDA-Public Use
  Company Number: US-009507513-1704USA000641

PATIENT
  Sex: Female

DRUGS (2)
  1. ASMANEX HFA [Concomitant]
     Active Substance: MOMETASONE FUROATE
  2. PROVENTIL [Suspect]
     Active Substance: ALBUTEROL
     Dosage: UNK

REACTIONS (1)
  - Tremor [Not Recovered/Not Resolved]
